FAERS Safety Report 26140929 (Version 1)
Quarter: 2025Q4

REPORT INFORMATION
  Report Type: Spontaneous
  Country: US (occurrence: None)
  Receive Date: 20251210
  Receipt Date: 20251210
  Transmission Date: 20260117
  Serious: Yes (Hospitalization)
  Sender: FDA-CTU
  Company Number: None

PATIENT
  Age: 74 Year
  Sex: Male
  Weight: 99 kg

DRUGS (1)
  1. EMPAGLIFLOZIN [Suspect]
     Active Substance: EMPAGLIFLOZIN
     Dates: start: 20250504, end: 20250711

REACTIONS (3)
  - Gangrene [None]
  - Osteomyelitis [None]
  - Toe amputation [None]

NARRATIVE: CASE EVENT DATE: 20250711
